FAERS Safety Report 12020267 (Version 5)
Quarter: 2019Q4

REPORT INFORMATION
  Report Type: Spontaneous
  Country: PT (occurrence: PT)
  Receive Date: 20160206
  Receipt Date: 20191218
  Transmission Date: 20200122
  Serious: Yes (Death, Other)
  Sender: FDA-Public Use
  Company Number: PT-ACCORD-037601

PATIENT
  Age: 56 Year
  Sex: Male

DRUGS (5)
  1. BASILIXIMAB [Concomitant]
     Active Substance: BASILIXIMAB
  2. EVEROLIMUS. [Suspect]
     Active Substance: EVEROLIMUS
     Indication: RENAL TRANSPLANT
     Dosage: REDUCTION OF IMMUNOSUPRESSIVE AGENTS
  3. TACROLIMUS. [Suspect]
     Active Substance: TACROLIMUS
     Indication: RENAL TRANSPLANT
     Dosage: REDUCTION OF IMMUNOSUPRESSIVE AGENTS
  4. MYCOPHENOLIC ACID. [Suspect]
     Active Substance: MYCOPHENOLIC ACID
     Indication: RENAL TRANSPLANT
     Dosage: REDUCTION OF IMMUNOSUPRESSIVE AGENTS
  5. PREDNISONE. [Suspect]
     Active Substance: PREDNISONE
     Indication: RENAL TRANSPLANT

REACTIONS (4)
  - Kaposi^s sarcoma [Fatal]
  - Multiple organ dysfunction syndrome [Fatal]
  - Renal tubular atrophy [Unknown]
  - Kidney fibrosis [Unknown]
